FAERS Safety Report 13542362 (Version 1)
Quarter: 2017Q2

REPORT INFORMATION
  Report Type: Spontaneous
  Country: US (occurrence: US)
  Receive Date: 20170512
  Receipt Date: 20170512
  Transmission Date: 20170830
  Serious: Yes (Other)
  Sender: FDA-Public Use
  Company Number: US-ROCHE-704257

PATIENT
  Age: 53 Year
  Sex: Female

DRUGS (2)
  1. ABRAXANE [Suspect]
     Active Substance: PACLITAXEL
     Indication: BREAST CANCER METASTATIC
     Dosage: 4 WEEKS CYCLE (3 WEEKS ON AND 1 WEEK OFF)
     Route: 042
     Dates: start: 200909, end: 201003
  2. AVASTIN [Suspect]
     Active Substance: BEVACIZUMAB
     Indication: BREAST CANCER METASTATIC
     Dosage: 4 WEEKS CYCLE (3 WEEKS ON AND 1 WEEK OFF)
     Route: 042
     Dates: start: 200909, end: 201003

REACTIONS (4)
  - Oedema peripheral [Not Recovered/Not Resolved]
  - Nasal septum perforation [Not Recovered/Not Resolved]
  - Hypertension [Not Recovered/Not Resolved]
  - Deafness [Not Recovered/Not Resolved]

NARRATIVE: CASE EVENT DATE: 200910
